FAERS Safety Report 14525614 (Version 1)
Quarter: 2018Q1

REPORT INFORMATION
  Report Type: Spontaneous
  Country: US (occurrence: US)
  Receive Date: 20180211
  Receipt Date: 20180211
  Transmission Date: 20180509
  Serious: Yes (Other)
  Sender: FDA-Public Use
  Company Number: None

PATIENT
  Age: 75 Year
  Sex: Female
  Weight: 68.4 kg

DRUGS (10)
  1. PEPCID [Concomitant]
     Active Substance: FAMOTIDINE
  2. VOLTAREN [Concomitant]
     Active Substance: DICLOFENAC SODIUM
  3. TYLENOL [Concomitant]
     Active Substance: ACETAMINOPHEN
  4. SR. MULTI-VITAMINS [Concomitant]
  5. VITAMIN D3 [Concomitant]
     Active Substance: CHOLECALCIFEROL
  6. MELOXICAM 15MG [Suspect]
     Active Substance: MELOXICAM
     Indication: ANTIINFLAMMATORY THERAPY
     Dosage: ?          QUANTITY:30 TABLET(S);?
     Route: 048
  7. ASPERCREME W/LIDOCAIN [Concomitant]
  8. BIOTIN [Concomitant]
     Active Substance: BIOTIN
  9. LOVASTATIN. [Concomitant]
     Active Substance: LOVASTATIN
  10. ASPIRIN. [Concomitant]
     Active Substance: ASPIRIN

REACTIONS (4)
  - Rash erythematous [None]
  - Hypersensitivity [None]
  - Rash generalised [None]
  - Pruritus [None]

NARRATIVE: CASE EVENT DATE: 20180202
